FAERS Safety Report 18753152 (Version 1)
Quarter: 2021Q1

REPORT INFORMATION
  Report Type: Spontaneous
  Country: US (occurrence: US)
  Receive Date: 20210118
  Receipt Date: 20210118
  Transmission Date: 20210419
  Serious: Yes (Hospitalization, Other)
  Sender: FDA-Public Use
  Company Number: US-ARBOR PHARMACEUTICALS, LLC-US-2021ARB000040

PATIENT
  Age: 48 Year
  Sex: Female

DRUGS (1)
  1. SEVELAMER CARBONATE. [Suspect]
     Active Substance: SEVELAMER CARBONATE
     Indication: PRODUCT USED FOR UNKNOWN INDICATION
     Dosage: UNK

REACTIONS (7)
  - Crystal deposit intestine [None]
  - Large intestinal ulcer [Recovering/Resolving]
  - Hypotension [None]
  - Anaemia [None]
  - Large intestinal stenosis [Unknown]
  - Colitis ischaemic [Not Recovered/Not Resolved]
  - Leukocytosis [None]
